FAERS Safety Report 4763673-X (Version None)
Quarter: 2005Q3

REPORT INFORMATION
  Report Type: 
  Country: None (occurrence: None)
  Receive Date: 20050902
  Receipt Date: 20050607
  Transmission Date: 20060218
  Serious: Yes (Other)
  Sender: FDA-Public Use
  Company Number: 2005085008

PATIENT
  Age: 41 Year
  Sex: Male
  Weight: 64.4108 kg

DRUGS (4)
  1. CAVERJECT [Suspect]
     Indication: ERECTILE DYSFUNCTION
     Dosage: 20 MG (20 MG, )
     Dates: start: 20050605
  2. SYNTHROID [Concomitant]
  3. FLUOXETINE [Concomitant]
  4. ANDROGEL [Concomitant]

REACTIONS (1)
  - PRIAPISM [None]
